FAERS Safety Report 7000255-3 (Version None)
Quarter: 2010Q3

REPORT INFORMATION
  Report Type: 
  Country: None (occurrence: None)
  Receive Date: 20100920
  Receipt Date: 20100126
  Transmission Date: 20110219
  Serious: Yes (Other)
  Sender: FDA-Public Use
  Company Number: US-ASTRAZENECA-2010SE03756

PATIENT
  Age: 30 Year
  Sex: Female
  Weight: 122.5 kg

DRUGS (6)
  1. SEROQUEL [Suspect]
     Route: 048
     Dates: start: 20010101
  2. SEROQUEL [Suspect]
     Route: 048
     Dates: start: 20090101
  3. METFORMIN [Concomitant]
  4. LEXAPRO [Concomitant]
  5. DIOXIN [Concomitant]
  6. TOPAMAX [Concomitant]

REACTIONS (1)
  - GLAUCOMA [None]
